FAERS Safety Report 10371552 (Version 2)
Quarter: 2014Q3

REPORT INFORMATION
  Report Type: Report from Study
  Country: US (occurrence: US)
  Receive Date: 20140808
  Receipt Date: 20140913
  Transmission Date: 20150326
  Serious: Yes (Other)
  Sender: FDA-Public Use
  Company Number: US-SA-2014SA104355

PATIENT
  Age: 55 Year
  Sex: Male

DRUGS (1)
  1. AUBAGIO [Suspect]
     Active Substance: TERIFLUNOMIDE
     Indication: MULTIPLE SCLEROSIS
     Route: 048
     Dates: start: 20140220

REACTIONS (9)
  - Asthma [Unknown]
  - Dyspnoea [Unknown]
  - Drug dose omission [Unknown]
  - Bloody discharge [Unknown]
  - Wound [Unknown]
  - Pain [Unknown]
  - Peripheral swelling [Unknown]
  - Memory impairment [Unknown]
  - Diarrhoea [Recovered/Resolved]

NARRATIVE: CASE EVENT DATE: 201403
